FAERS Safety Report 6238922-1 (Version None)
Quarter: 2009Q2

REPORT INFORMATION
  Report Type: 
  Country: None (occurrence: None)
  Receive Date: 20090617
  Receipt Date: 20080110
  Transmission Date: 20091009
  Serious: No
  Sender: FDA-Public Use
  Company Number: 271189

PATIENT
  Age: 66 Year
  Sex: Female

DRUGS (2)
  1. LEVEMIR [Suspect]
     Indication: INSULIN-REQUIRING TYPE 2 DIABETES MELLITUS
     Dosage: 50 IU, QD, SUBCUTANEOUS ; 40 IU, QD, SUBCUTANEOUS
     Route: 058
     Dates: end: 20080101
  2. LEVEMIR [Suspect]
     Indication: INSULIN-REQUIRING TYPE 2 DIABETES MELLITUS
     Dosage: 50 IU, QD, SUBCUTANEOUS ; 40 IU, QD, SUBCUTANEOUS
     Route: 058
     Dates: end: 20080101

REACTIONS (2)
  - BLOOD GLUCOSE DECREASED [None]
  - WEIGHT DECREASED [None]
